FAERS Safety Report 6362224-6 (Version None)
Quarter: 2009Q3

REPORT INFORMATION
  Report Type: 
  Country: None (occurrence: None)
  Receive Date: 20090918
  Receipt Date: 20090812
  Transmission Date: 20100115
  Serious: No
  Sender: FDA-Public Use
  Company Number: US-ABBOTT-09P-163-0585570-00

PATIENT
  Sex: Male
  Weight: 97.61 kg

DRUGS (1)
  1. HUMIRA [Suspect]
     Indication: PSORIASIS
     Dates: start: 20080625, end: 20080730

REACTIONS (5)
  - DEPRESSION [None]
  - HEADACHE [None]
  - PSORIASIS [None]
  - RHINORRHOEA [None]
  - SNEEZING [None]
